FAERS Safety Report 8144765-4 (Version None)
Quarter: 2012Q1

REPORT INFORMATION
  Report Type: 
  Country: None (occurrence: None)
  Receive Date: 20120217
  Receipt Date: 20120207
  Transmission Date: 20120608
  Serious: Yes (Hospitalization)
  Sender: FDA-Public Use
  Company Number: US-ACTELION-A-NJ2011-57778

PATIENT

DRUGS (3)
  1. REVATIO [Concomitant]
  2. EPOPROSTENOL SODIUM [Suspect]
     Indication: PULMONARY ARTERIAL HYPERTENSION
     Dosage: 8 NG/KG, PER MIN
     Route: 041
     Dates: start: 20111114, end: 20120118
  3. COUMADIN [Concomitant]

REACTIONS (5)
  - DYSPNOEA EXERTIONAL [None]
  - CONDITION AGGRAVATED [None]
  - CARDIAC DISORDER [None]
  - PULMONARY ARTERIAL HYPERTENSION [None]
  - NO THERAPEUTIC RESPONSE [None]
